FAERS Safety Report 9993838 (Version 1)
Quarter: 2014Q1

REPORT INFORMATION
  Report Type: Spontaneous
  Country: US (occurrence: US)
  Receive Date: 20140310
  Receipt Date: 20140310
  Transmission Date: 20141002
  Serious: No
  Sender: FDA-Public Use
  Company Number: US-AMGEN-USASP2013033454

PATIENT
  Age: 71 Year
  Sex: Female

DRUGS (11)
  1. SENSIPAR [Suspect]
     Indication: HYPERPARATHYROIDISM SECONDARY
     Dosage: 30 MG, UNK
     Dates: start: 201305
  2. VITAMIN D3 [Concomitant]
     Dosage: 1000 UNK, QD
  3. XANAX [Concomitant]
     Dosage: 0.25 MG, UNK
  4. PREMARIN ASAHIKASEI [Concomitant]
  5. TENORMIN [Concomitant]
     Dosage: 25 MG, UNK
  6. LISINOPRIL [Concomitant]
     Dosage: BID
  7. NORVASC [Concomitant]
  8. BABY ASPIRIN [Concomitant]
     Dosage: 81 MG, QD
  9. LIPITOR [Concomitant]
     Dosage: 10 MG, UNK
  10. COLACE [Concomitant]
     Dosage: 2 UNK, QD
  11. KONSYL                             /00091301/ [Concomitant]
     Dosage: 0.25 MG, UNK

REACTIONS (2)
  - Insomnia [Unknown]
  - Nausea [Unknown]
